FAERS Safety Report 25188424 (Version 1)
Quarter: 2025Q2

REPORT INFORMATION
  Report Type: Spontaneous
  Country: HU (occurrence: HU)
  Receive Date: 20250411
  Receipt Date: 20250411
  Transmission Date: 20250716
  Serious: Yes (Other)
  Sender: ROCHE
  Company Number: HU-ROCHE-10000247361

PATIENT

DRUGS (1)
  1. OCREVUS [Suspect]
     Active Substance: OCRELIZUMAB
     Indication: Multiple sclerosis
     Route: 065

REACTIONS (9)
  - Asthenia [Unknown]
  - Lhermitte^s sign [Unknown]
  - Paraesthesia [Unknown]
  - Paraesthesia [Unknown]
  - Fatigue [Unknown]
  - Brain fog [Unknown]
  - Dysphemia [Unknown]
  - Depression [Unknown]
  - Memory impairment [Unknown]
